FAERS Safety Report 16484295 (Version 1)
Quarter: 2019Q2

REPORT INFORMATION
  Report Type: Spontaneous
  Country: CA (occurrence: CA)
  Receive Date: 20190627
  Receipt Date: 20190627
  Transmission Date: 20190711
  Serious: Yes (Death, Hospitalization, Other)
  Sender: FDA-Public Use
  Company Number: CA-TEVA-2019-CA-1067258

PATIENT
  Age: 2 Year
  Sex: Female

DRUGS (12)
  1. TACROLIMUS. [Interacting]
     Active Substance: TACROLIMUS
     Indication: IMMUNOSUPPRESSION
     Route: 048
  2. RAPAMUNE [Interacting]
     Active Substance: SIROLIMUS
     Indication: IMMUNOSUPPRESSION
     Dosage: .5 MILLIGRAM DAILY;
     Route: 048
  3. RAPAMUNE [Interacting]
     Active Substance: SIROLIMUS
     Dosage: 2 MILLIGRAM DAILY;
     Route: 048
  4. PREDNISOLONE. [Concomitant]
     Active Substance: PREDNISOLONE
     Route: 065
  5. METHYLPREDNISOLONE SODIUM SUCCINATE. [Concomitant]
     Active Substance: METHYLPREDNISOLONE SODIUM SUCCINATE
     Route: 065
  6. THYMOGLOBULIN [Concomitant]
     Active Substance: LAPINE T-LYMPHOCYTE IMMUNE GLOBULIN
     Route: 065
  7. AMIODARONE HYDROCHLORIDE. [Suspect]
     Active Substance: AMIODARONE HYDROCHLORIDE
     Indication: ARRHYTHMIA
     Route: 065
  8. CELLCEPT [Concomitant]
     Active Substance: MYCOPHENOLATE MOFETIL\MYCOPHENOLATE MOFETIL HYDROCHLORIDE
     Route: 048
  9. NADOLOL. [Concomitant]
     Active Substance: NADOLOL
     Route: 065
  10. RAPAMUNE [Interacting]
     Active Substance: SIROLIMUS
     Dosage: .1 MILLIGRAM DAILY;
     Route: 048
  11. RAPAMUNE [Interacting]
     Active Substance: SIROLIMUS
     Dosage: .3 MILLIGRAM DAILY;
     Route: 048
  12. TACROLIMUS. [Interacting]
     Active Substance: TACROLIMUS
     Dosage: 0.4 MG, 1 EVERY 12 HOURS,
     Route: 048

REACTIONS (19)
  - Right ventricular dysfunction [Fatal]
  - Anaemia [Fatal]
  - Complication associated with device [Fatal]
  - Drug interaction [Fatal]
  - Drug level increased [Fatal]
  - Renal impairment [Fatal]
  - Blood albumin increased [Fatal]
  - Pyrexia [Fatal]
  - Cardiac failure congestive [Fatal]
  - Coronary artery disease [Fatal]
  - Disturbance in attention [Fatal]
  - Ejection fraction decreased [Fatal]
  - Haemoglobin decreased [Fatal]
  - Hyperbilirubinaemia [Fatal]
  - International normalised ratio increased [Fatal]
  - Transaminases increased [Fatal]
  - Electrocardiogram abnormal [Fatal]
  - Ventricular tachycardia [Fatal]
  - White blood cell count decreased [Fatal]
